FAERS Safety Report 10706772 (Version 1)
Quarter: 2015Q1

REPORT INFORMATION
  Report Type: Spontaneous
  Country: US (occurrence: None)
  Receive Date: 20150112
  Receipt Date: 20150112
  Transmission Date: 20150721
  Serious: Yes (Other)
  Sender: FDA-Public Use
  Company Number: None

PATIENT
  Age: 67 Year
  Sex: Male
  Weight: 99.79 kg

DRUGS (1)
  1. XOLAIR [Suspect]
     Active Substance: OMALIZUMAB

REACTIONS (8)
  - Dysphonia [None]
  - Contusion [None]
  - Back pain [None]
  - Mobility decreased [None]
  - Arthralgia [None]
  - Muscular weakness [None]
  - Asthenia [None]
  - Headache [None]

NARRATIVE: CASE EVENT DATE: 20141017
